FAERS Safety Report 9854819 (Version 3)
Quarter: 2014Q1

REPORT INFORMATION
  Report Type: Spontaneous
  Country: DE (occurrence: DE)
  Receive Date: 20140130
  Receipt Date: 20140217
  Transmission Date: 20141002
  Serious: Yes (Other)
  Sender: FDA-Public Use
  Company Number: DE-SHIRE-ALL1-2013-08316

PATIENT
  Age: 10 Year
  Sex: Male
  Weight: 39 kg

DRUGS (3)
  1. ELVANSE [Suspect]
     Indication: DISTURBANCE IN ATTENTION
     Dosage: 50 MG, 1X/DAY:QD (MORNING)
     Route: 065
     Dates: start: 20131003, end: 20131127
  2. ELVANSE [Suspect]
     Dosage: 30 MG, 1X/DAY:QD
     Route: 065
     Dates: start: 20131128
  3. IRON [Concomitant]
     Indication: IRON DEFICIENCY
     Dosage: 1 DF, 1X/DAY:QD
     Route: 048
     Dates: start: 201310, end: 201311

REACTIONS (2)
  - Epistaxis [Recovered/Resolved]
  - Headache [Not Recovered/Not Resolved]
